FAERS Safety Report 15122461 (Version 1)
Quarter: 2018Q3

REPORT INFORMATION
  Report Type: Spontaneous
  Country: NO (occurrence: NO)
  Receive Date: 20180709
  Receipt Date: 20180709
  Transmission Date: 20181010
  Serious: Yes (Other)
  Sender: FDA-Public Use
  Company Number: NO-PFIZER INC-2018271588

PATIENT
  Age: 21 Year
  Sex: Female
  Weight: 59 kg

DRUGS (4)
  1. IRON [Concomitant]
     Active Substance: IRON
  2. B VITAMIN COMP [Concomitant]
  3. LOETTE?28 [Suspect]
     Active Substance: ETHINYL ESTRADIOL\LEVONORGESTREL
     Indication: CONTRACEPTION
     Dosage: 1 DF, 1X/DAY
     Dates: start: 20150304, end: 20150331
  4. FISH OIL [Concomitant]
     Active Substance: FISH OIL

REACTIONS (6)
  - Chest pain [Unknown]
  - Cardiac fibrillation [Recovered/Resolved with Sequelae]
  - Acne [Unknown]
  - Panic attack [Recovered/Resolved]
  - Paraesthesia [Recovered/Resolved]
  - Somnolence [Unknown]

NARRATIVE: CASE EVENT DATE: 20150306
